FAERS Safety Report 19946240 (Version 2)
Quarter: 2021Q4

REPORT INFORMATION
  Report Type: Spontaneous
  Country: GB (occurrence: GB)
  Receive Date: 20211013
  Receipt Date: 20211020
  Transmission Date: 20220303
  Serious: Yes (Hospitalization, Other)
  Sender: FDA-Public Use
  Company Number: GB-002147023-NVSC2021GB221927

PATIENT
  Age: 2 Year
  Sex: Female

DRUGS (29)
  1. VENETOCLAX [Suspect]
     Active Substance: VENETOCLAX
     Indication: Refractory cancer
     Route: 048
     Dates: start: 20210802, end: 20210802
  2. VENETOCLAX [Suspect]
     Active Substance: VENETOCLAX
     Route: 048
     Dates: start: 20210803, end: 20210811
  3. VENETOCLAX [Suspect]
     Active Substance: VENETOCLAX
     Route: 048
     Dates: start: 20210823, end: 20210901
  4. CYCLOPHOSPHAMIDE [Suspect]
     Active Substance: CYCLOPHOSPHAMIDE
     Indication: Refractory cancer
     Dosage: GIVEN FOR 26 DAY
     Route: 042
     Dates: start: 20210802, end: 20210828
  5. TOPOTECAN HYDROCHLORIDE [Suspect]
     Active Substance: TOPOTECAN HYDROCHLORIDE
     Indication: Refractory cancer
     Dosage: 5 DAY EVERY 21 DAY?26 DAY
     Route: 042
     Dates: start: 20210802, end: 20210827
  6. CYCLIZINE [Concomitant]
     Active Substance: CYCLIZINE
     Indication: Prophylaxis
     Dosage: 5.5 MG, TID (16.5MG)
     Route: 042
     Dates: start: 20210802, end: 20210802
  7. CYCLIZINE [Concomitant]
     Active Substance: CYCLIZINE
     Dosage: UNK
     Route: 065
     Dates: start: 20210824
  8. DEXAMETHASONE [Concomitant]
     Active Substance: DEXAMETHASONE
     Indication: Prophylaxis
     Dosage: 2 MG, BID
     Route: 042
     Dates: start: 20210802, end: 20210807
  9. DEXAMETHASONE [Concomitant]
     Active Substance: DEXAMETHASONE
     Dosage: 13 ML, BID
     Route: 048
     Dates: start: 20210808
  10. FILGRASTIM [Concomitant]
     Active Substance: FILGRASTIM
     Indication: Chemotherapy
     Dosage: 1.5 MG, QD
     Route: 030
     Dates: start: 20210808, end: 20210808
  11. FILGRASTIM [Concomitant]
     Active Substance: FILGRASTIM
     Dosage: 1.5 MG, QD
     Route: 030
     Dates: start: 20210829, end: 20210829
  12. FUROSEMIDE [Concomitant]
     Active Substance: FUROSEMIDE
     Indication: Transfusion
     Dosage: 5.4 MG, 4 IN 1 AS REQUIRED
     Route: 042
     Dates: start: 20210805
  13. MELATONIN [Concomitant]
     Active Substance: MELATONIN
     Indication: Prophylaxis
     Dosage: 2 MG, (2 MG,1 IN 1 D)
     Route: 048
     Dates: start: 20210801
  14. METHADONE [Concomitant]
     Active Substance: METHADONE HYDROCHLORIDE
     Indication: Pain
     Dosage: 0.6 MG, BID
     Route: 048
     Dates: start: 20210805
  15. METOCLOPRAMIDE [Concomitant]
     Active Substance: METOCLOPRAMIDE
     Indication: Prophylaxis
     Dosage: 1 MG, TID
     Route: 048
     Dates: start: 20210801, end: 20210801
  16. METOCLOPRAMIDE [Concomitant]
     Active Substance: METOCLOPRAMIDE
     Dosage: 1 MG, TID
     Route: 042
     Dates: start: 20210803
  17. MORPHINE SULFATE [Concomitant]
     Active Substance: MORPHINE SULFATE
     Indication: Pain
     Dosage: 0.6 MG, 2.4 MG,1 IN 4 AS REQUIRED
     Route: 048
     Dates: start: 20210802, end: 20210802
  18. MORPHINE SULFATE [Concomitant]
     Active Substance: MORPHINE SULFATE
     Dosage: 3 MG, Q4H
     Route: 048
     Dates: start: 20210803, end: 20210804
  19. MORPHINE SULFATE [Concomitant]
     Active Substance: MORPHINE SULFATE
     Dosage: UNK, (2.4 MG,1 IN 4 AS REQUIRED)
     Route: 048
     Dates: start: 20210805
  20. ONDANSETRON [Concomitant]
     Active Substance: ONDANSETRON
     Indication: Vomiting
     Dosage: 2 MG, TID
     Route: 048
     Dates: start: 20210801, end: 20210802
  21. ONDANSETRON [Concomitant]
     Active Substance: ONDANSETRON
     Indication: Prophylaxis
     Dosage: 2.5 MG, TID
     Route: 042
     Dates: start: 20210802, end: 20210808
  22. ONDANSETRON [Concomitant]
     Active Substance: ONDANSETRON
     Dosage: UNKNOWN
     Route: 065
     Dates: start: 20210824
  23. ACETAMINOPHEN [Concomitant]
     Active Substance: ACETAMINOPHEN
     Indication: Pain
     Dosage: 1 IN 6 AS REQUIRED ALCOHOL FREE, SUSPENSION AND EFFERVESCENT GRANULES FORORAL SUSPENSION
     Route: 048
     Dates: start: 20210802
  24. ACETAMINOPHEN [Concomitant]
     Active Substance: ACETAMINOPHEN
     Dosage: 155 MG, QD, 1 IN 1 AS REQUIRED
     Route: 042
     Dates: start: 20210802
  25. PYRIDOXINE HYDROCHLORIDE [Concomitant]
     Active Substance: PYRIDOXINE HYDROCHLORIDE
     Indication: Prophylaxis
     Route: 048
     Dates: start: 20210801
  26. VITAMIN B12 [Concomitant]
     Active Substance: CYANOCOBALAMIN
     Indication: Prophylaxis
     Route: 048
     Dates: start: 20210801
  27. VITAMIN B1 [Concomitant]
     Active Substance: THIAMINE HYDROCHLORIDE
     Indication: Prophylaxis
     Route: 048
     Dates: start: 20210801
  28. RIBOFLAVIN [Concomitant]
     Active Substance: RIBOFLAVIN
     Indication: Prophylaxis
     Route: 048
     Dates: start: 20210801
  29. TRYPTOPHAN [Concomitant]
     Active Substance: TRYPTOPHAN
     Indication: Prophylaxis
     Route: 048
     Dates: start: 20210801

REACTIONS (4)
  - Febrile neutropenia [Recovered/Resolved]
  - Upper respiratory tract infection [Not Recovered/Not Resolved]
  - Refractory cancer [Unknown]
  - Malignant neoplasm progression [Unknown]

NARRATIVE: CASE EVENT DATE: 20210101
